FAERS Safety Report 4880062-8 (Version None)
Quarter: 2006Q1

REPORT INFORMATION
  Report Type: 
  Country: None (occurrence: None)
  Receive Date: 20060113
  Receipt Date: 20060105
  Transmission Date: 20060701
  Serious: Yes (Hospitalization)
  Sender: FDA-Public Use
  Company Number: PHBS2006DK00687

PATIENT
  Age: 11 Year
  Sex: Female
  Weight: 48.1 kg

DRUGS (4)
  1. VOLTAREN [Suspect]
     Indication: PAIN
     Dosage: 50 MG, TID
     Route: 048
     Dates: start: 20050920, end: 20050921
  2. THIOPENTAL SODIUM [Suspect]
     Indication: ANAESTHESIA
  3. PROPOFOL [Suspect]
     Indication: ANAESTHESIA
  4. ULTIVA [Suspect]
     Indication: ANAESTHESIA

REACTIONS (9)
  - BLOOD CREATININE INCREASED [None]
  - DRUG INTERACTION [None]
  - FATIGUE [None]
  - HYPERTENSION [None]
  - NEPHRITIS INTERSTITIAL [None]
  - OEDEMA [None]
  - POLYDIPSIA [None]
  - POLYURIA [None]
  - RENAL FAILURE [None]
